FAERS Safety Report 8757080 (Version 2)
Quarter: 2012Q4

REPORT INFORMATION
  Report Type: 
  Country: JP (occurrence: JP)
  Receive Date: 20120828
  Receipt Date: 20120906
  Transmission Date: 20130627
  Serious: Yes (Death)
  Sender: FDA-Public Use
  Company Number: JP-B.I. PHARMACEUTICALS,INC./RIDGEFIELD-2012-BP-20852NB

PATIENT
  Age: 77 Year
  Sex: Female
  Weight: 50.5 kg

DRUGS (7)
  1. PRAZAXA [Suspect]
     Indication: ATRIAL FIBRILLATION
     Dosage: 220 mg
     Route: 048
     Dates: start: 20120709
  2. DIART [Concomitant]
     Indication: ATRIAL FIBRILLATION
     Dosage: 30 mg
     Route: 065
     Dates: start: 20120709
  3. ASPARA POTASSIUM [Concomitant]
     Indication: ATRIAL FIBRILLATION
     Dosage: 1.5 g
     Route: 065
     Dates: start: 20120709
  4. MICARDIS [Concomitant]
     Indication: ATRIAL FIBRILLATION
     Dosage: 40 mg
     Route: 065
     Dates: start: 20120709
  5. LIPITOR [Concomitant]
     Indication: ATRIAL FIBRILLATION
     Dosage: 10 mg
     Route: 065
     Dates: start: 20120709
  6. MAINTATE [Concomitant]
     Indication: ATRIAL FIBRILLATION
     Dosage: 2.5 mg
     Route: 065
     Dates: start: 20120709
  7. GOODMIN [Concomitant]
     Indication: INSOMNIA
     Dosage: 0.25 mg
     Route: 065
     Dates: start: 20120709

REACTIONS (4)
  - Gastrointestinal haemorrhage [Fatal]
  - Haematemesis [Fatal]
  - Diarrhoea [Unknown]
  - Vomiting [Unknown]
